FAERS Safety Report 23538560 (Version 1)
Quarter: 2024Q1

REPORT INFORMATION
  Report Type: Report from Study
  Country: NL (occurrence: NL)
  Receive Date: 20240219
  Receipt Date: 20240219
  Transmission Date: 20240409
  Serious: Yes (Death)
  Sender: FDA-Public Use
  Company Number: NL-ABBVIE-5644624

PATIENT
  Sex: Male

DRUGS (13)
  1. CARBIDOPA\LEVODOPA [Suspect]
     Active Substance: CARBIDOPA\LEVODOPA
     Indication: Parkinson^s disease
     Dosage: MD: 10.0 ML, CD: 2.3 ML/H, ED: 3.0 ML, CND: 0.8 ML/H, END: 3.0 ML?REMAINS AT 24 HOURS
     Route: 050
     Dates: start: 20230824, end: 20230829
  2. CARBIDOPA\LEVODOPA [Suspect]
     Active Substance: CARBIDOPA\LEVODOPA
     Dosage: CND: 3.0 ML/H. END: 1.0 ML ?REMAINS AT 16 HOURS
     Route: 050
     Dates: start: 20230829, end: 20230904
  3. CARBIDOPA\LEVODOPA [Suspect]
     Active Substance: CARBIDOPA\LEVODOPA
     Dosage: CND: 3.0 ML/H. END: 0.8 ML?REMAINS AT 24 HOURS
     Route: 050
     Dates: start: 20230904, end: 20231002
  4. CARBIDOPA\LEVODOPA [Suspect]
     Active Substance: CARBIDOPA\LEVODOPA
     Dosage: CND: 3.0 ML/H. END: 1.0 ML?REMAINS AT 16 HOURS
     Route: 050
     Dates: start: 20231002, end: 20231219
  5. CARBIDOPA\LEVODOPA [Suspect]
     Active Substance: CARBIDOPA\LEVODOPA
     Route: 050
     Dates: start: 20210125
  6. CARBIDOPA\LEVODOPA [Suspect]
     Active Substance: CARBIDOPA\LEVODOPA
     Dosage: MD: 0.0 ML, CD: 1.3 ML/H, ED: 3.0 ML
     Route: 050
     Dates: start: 20231219, end: 20240215
  7. CARBIDOPA\LEVODOPA [Suspect]
     Active Substance: CARBIDOPA\LEVODOPA
     Dosage: MD: 11.0 ML, CD: 2.3 ML/H, ED: 3.0 ML?REMAINS AT 24 HOURS
     Route: 050
     Dates: start: 20230801, end: 20230824
  8. TEMAZEPAM [Concomitant]
     Active Substance: TEMAZEPAM
     Indication: Product used for unknown indication
     Route: 048
     Dates: start: 20180101
  9. POLYETHYLENE GLYCOLS [Concomitant]
     Active Substance: POLYETHYLENE GLYCOLS
     Indication: Constipation
     Route: 048
     Dates: start: 20170101
  10. OMEPRAZOLE [Concomitant]
     Active Substance: OMEPRAZOLE
     Indication: Gastrointestinal disorder prophylaxis
     Route: 048
     Dates: start: 20170101
  11. QUETIAPINE [Concomitant]
     Active Substance: QUETIAPINE
     Indication: Hallucination
     Route: 048
     Dates: start: 20180101
  12. Madopar Hydrodynamically Balanced System [Concomitant]
     Indication: Parkinson^s disease
     Route: 048
     Dates: start: 20170101
  13. BENSERAZIDE HYDROCHLORIDE\LEVODOPA [Concomitant]
     Active Substance: BENSERAZIDE HYDROCHLORIDE\LEVODOPA
     Indication: Parkinson^s disease
     Route: 048
     Dates: start: 20130101, end: 20210125

REACTIONS (1)
  - Death [Fatal]
